FAERS Safety Report 7376243 (Version 3)
Quarter: 2016Q3

REPORT INFORMATION
  Report Type: Report from Study
  Country: US (occurrence: US)
  Receive Date: 20100504
  Receipt Date: 20160914
  Transmission Date: 20161109
  Serious: Yes (Hospitalization, Other)
  Sender: FDA-Public Use
  Company Number: US-ROCHE-700747

PATIENT
  Age: 58 Year
  Sex: Female
  Weight: 74 kg

DRUGS (2)
  1. TEMSIROLIMUS [Suspect]
     Active Substance: TEMSIROLIMUS
     Indication: CARCINOID TUMOUR
     Dosage: TEMSIROLIMUS 25 MG ON DAY 1,8,15 AND 22, LAST DOSE OF DRUG WAS ON 23 MARCH 2010 (CYCLE 4. DAY8).?DAT
     Route: 042
  2. BEVACIZUMAB [Suspect]
     Active Substance: BEVACIZUMAB
     Indication: CARCINOID TUMOUR
     Dosage: LAST DOSE OF BEVACIZUMAB ON 16 MARCH 2010, OVER 30-90 MINUTES ON DAYS 1 AND 15?DATE OF LAST TREATMEN
     Route: 042

REACTIONS (9)
  - Hypoxia [Unknown]
  - Blood bilirubin increased [Unknown]
  - Wound dehiscence [Unknown]
  - Platelet count decreased [Unknown]
  - Pneumonitis [Unknown]
  - Left ventricular dysfunction [Unknown]
  - Hypertension [Unknown]
  - Pneumonitis [Unknown]
  - Cardiac failure congestive [Recovered/Resolved]

NARRATIVE: CASE EVENT DATE: 20100330
